FAERS Safety Report 8359865-3 (Version None)
Quarter: 2012Q2

REPORT INFORMATION
  Report Type: 
  Country: None (occurrence: None)
  Receive Date: 20120515
  Receipt Date: 20120507
  Transmission Date: 20120825
  Serious: Yes (Other)
  Sender: FDA-Public Use
  Company Number: JP-ASTELLAS-2012JP004106

PATIENT
  Age: 95 Year
  Sex: Male

DRUGS (4)
  1. DUTASTERIDE [Concomitant]
     Route: 065
  2. ANTIHYPERTENSIVES [Concomitant]
     Route: 065
  3. VESICARE [Suspect]
     Indication: HYPERTONIC BLADDER
     Dosage: 2.5 MG, UNKNOWN/D
     Route: 048
     Dates: start: 20110801
  4. URIEF [Concomitant]
     Route: 065

REACTIONS (2)
  - DELIRIUM [None]
  - HALLUCINATION [None]
